FAERS Safety Report 12871037 (Version 2)
Quarter: 2016Q4

REPORT INFORMATION
  Report Type: Spontaneous
  Country: US (occurrence: US)
  Receive Date: 20161021
  Receipt Date: 20161121
  Transmission Date: 20170207
  Serious: Yes (Other)
  Sender: FDA-Public Use
  Company Number: US-BAYER-2016-201681

PATIENT
  Age: 25 Year
  Sex: Female
  Weight: 54.88 kg

DRUGS (1)
  1. SKYLA [Suspect]
     Active Substance: LEVONORGESTREL
     Indication: CONTRACEPTION
     Dosage: 14 MCG/24HR, CONT
     Route: 015
     Dates: start: 20160630

REACTIONS (2)
  - Vaginal haemorrhage [Not Recovered/Not Resolved]
  - Device dislocation [None]

NARRATIVE: CASE EVENT DATE: 2016
